FAERS Safety Report 8387623-2 (Version None)
Quarter: 2012Q2

REPORT INFORMATION
  Report Type: 
  Country: None (occurrence: None)
  Receive Date: 20120525
  Receipt Date: 20120514
  Transmission Date: 20120825
  Serious: No
  Sender: FDA-Public Use
  Company Number: US-ASTRAZENECA-2012SE31275

PATIENT
  Age: 56 Year
  Sex: Female

DRUGS (2)
  1. CITALOPRAM HYDROBROMIDE [Concomitant]
  2. SEROQUEL XR [Suspect]
     Indication: DEPRESSION
     Route: 048

REACTIONS (3)
  - SOMNOLENCE [None]
  - INTENTIONAL DRUG MISUSE [None]
  - ADVERSE EVENT [None]
